FAERS Safety Report 6770261-2 (Version None)
Quarter: 2010Q2

REPORT INFORMATION
  Report Type: 
  Country: None (occurrence: None)
  Receive Date: 20100615
  Receipt Date: 20100610
  Transmission Date: 20101027
  Serious: Yes (Death)
  Sender: FDA-Public Use
  Company Number: JP-BRISTOL-MYERS SQUIBB COMPANY-14992457

PATIENT
  Age: 73 Year
  Sex: Male
  Weight: 56 kg

DRUGS (6)
  1. ERBITUX [Suspect]
     Indication: RECTAL CANCER
     Dosage: 500MG:24SEP09-24SEP09 350MG:01OCT09-07JAN2010(98 DAYS)
     Route: 041
     Dates: start: 20090924, end: 20100107
  2. IRINOTECAN [Concomitant]
     Indication: RECTAL CANCER
     Dosage: 24SEP-07JAN2010,29OCT-(C),19NOV-07JAN10(1IN 3W) 49 DAYS
     Route: 041
     Dates: start: 20090924, end: 20100107
  3. POLARAMINE [Concomitant]
     Indication: PREMEDICATION
     Dosage: TABS
     Route: 048
     Dates: start: 20090924, end: 20100107
  4. DECADRON [Concomitant]
     Indication: PREMEDICATION
     Route: 041
     Dates: start: 20090924, end: 20100107
  5. NEUTROGIN [Concomitant]
     Route: 058
     Dates: start: 20091022, end: 20091023
  6. GRANISETRON [Concomitant]
     Indication: ANTIEMETIC SUPPORTIVE CARE
     Route: 065
     Dates: start: 20090718, end: 20100107

REACTIONS (2)
  - INTERSTITIAL LUNG DISEASE [None]
  - PNEUMONIA [None]
